FAERS Safety Report 21619560 (Version 1)
Quarter: 2022Q4

REPORT INFORMATION
  Report Type: Report from Study
  Country: US (occurrence: US)
  Receive Date: 20221121
  Receipt Date: 20221121
  Transmission Date: 20230113
  Serious: No
  Sender: FDA-Public Use
  Company Number: US-ABBVIE-4170496

PATIENT
  Sex: Male

DRUGS (1)
  1. SKYRIZI [Suspect]
     Active Substance: RISANKIZUMAB-RZAA
     Indication: Crohn^s disease
     Route: 042

REACTIONS (5)
  - Swelling face [Recovering/Resolving]
  - Eye infection [Recovering/Resolving]
  - Alopecia [Not Recovered/Not Resolved]
  - Eye discharge [Recovering/Resolving]
  - Eye swelling [Recovering/Resolving]
